FAERS Safety Report 13298941 (Version 1)
Quarter: 2017Q1

REPORT INFORMATION
  Report Type: Spontaneous
  Country: MX (occurrence: MX)
  Receive Date: 20170306
  Receipt Date: 20170306
  Transmission Date: 20170428
  Serious: Yes (Death)
  Sender: FDA-Public Use
  Company Number: MX-MUNDIPHARMA DS AND PHARMACOVIGILANCE-GBR-2017-0043943

PATIENT
  Sex: Female

DRUGS (1)
  1. SOLORO7 [Suspect]
     Active Substance: BUPRENORPHINE
     Indication: PRODUCT USED FOR UNKNOWN INDICATION
     Dosage: STRENGHT 5 MG
     Route: 062

REACTIONS (2)
  - Hyperhidrosis [Unknown]
  - Death [Fatal]
